FAERS Safety Report 6829017-4 (Version None)
Quarter: 2010Q3

REPORT INFORMATION
  Report Type: 
  Country: None (occurrence: None)
  Receive Date: 20100706
  Receipt Date: 20100618
  Transmission Date: 20110219
  Serious: Yes (Other)
  Sender: FDA-Public Use
  Company Number: ALA_00581_2010

PATIENT
  Age: 1 Month
  Sex: Male
  Weight: 3.7 kg

DRUGS (2)
  1. DIPENTUM [Suspect]
     Indication: COLITIS ULCERATIVE
     Dosage: TRANSPLACENTAL, (250 MG BID TRANSMAMMARY)
     Route: 064
     Dates: end: 20100614
  2. DIPENTUM [Suspect]
     Indication: COLITIS ULCERATIVE
     Dosage: TRANSPLACENTAL, (250 MG BID TRANSMAMMARY)
     Route: 064
     Dates: start: 20091101

REACTIONS (8)
  - ALANINE AMINOTRANSFERASE INCREASED [None]
  - ASPARTATE AMINOTRANSFERASE INCREASED [None]
  - DIARRHOEA NEONATAL [None]
  - DRUG EXPOSURE DURING PREGNANCY [None]
  - DRUG EXPOSURE VIA BREAST MILK [None]
  - FEEDING DISORDER [None]
  - POOR WEIGHT GAIN NEONATAL [None]
  - TRANSAMINASES INCREASED [None]
